FAERS Safety Report 20110662 (Version 1)
Quarter: 2021Q4

REPORT INFORMATION
  Report Type: Spontaneous
  Country: US (occurrence: None)
  Receive Date: 20211124
  Receipt Date: 20211124
  Transmission Date: 20220303
  Serious: Yes (Life-Threatening, Other)
  Sender: FDA-Public Use
  Company Number: None

PATIENT
  Age: 33 Year
  Sex: Female
  Weight: 94.4 kg

DRUGS (1)
  1. REMDESIVIR [Suspect]
     Active Substance: REMDESIVIR
     Indication: COVID-19
     Dosage: FREQUENCY : DAILY;?
     Route: 041
     Dates: start: 20211117, end: 20211119

REACTIONS (5)
  - Bradycardia [None]
  - Infusion related reaction [None]
  - Pneumonitis [None]
  - Pleural effusion [None]
  - Fibrin D dimer increased [None]

NARRATIVE: CASE EVENT DATE: 20211120
